FAERS Safety Report 15684901 (Version 4)
Quarter: 2020Q3

REPORT INFORMATION
  Report Type: Spontaneous
  Country: TW (occurrence: TW)
  Receive Date: 20181204
  Receipt Date: 20200923
  Transmission Date: 20201102
  Serious: Yes (Hospitalization, Other)
  Sender: FDA-Public Use
  Company Number: TW-PFIZER INC-2018495769

PATIENT
  Age: 59 Year
  Sex: Male

DRUGS (2)
  1. TEICOPLANIN [Concomitant]
     Active Substance: TEICOPLANIN
     Indication: OSTEOMYELITIS
     Dosage: UNK
  2. PIPERACILLIN/TAZOBACTAM [Suspect]
     Active Substance: PIPERACILLIN SODIUM\TAZOBACTAM SODIUM
     Indication: PNEUMONIA
     Dosage: UNK

REACTIONS (2)
  - Linear IgA disease [Recovering/Resolving]
  - Drug eruption [Recovering/Resolving]
